FAERS Safety Report 8134143 (Version 3)
Quarter: 2012Q4

REPORT INFORMATION
  Report Type: 
  Country: US (occurrence: US)
  Receive Date: 20110913
  Receipt Date: 20120927
  Transmission Date: 20130627
  Serious: Yes (Other)
  Sender: FDA-Public Use
  Company Number: US-BAYER-2011-083320

PATIENT
  Age: 44 Year
  Sex: Female

DRUGS (4)
  1. YASMIN [Suspect]
     Dosage: UNK
     Dates: start: 2002, end: 2004
  2. GLUCOPHAGE [Concomitant]
     Dosage: UNK; Twice daily
     Route: 048
  3. AVAPRO [Concomitant]
     Dosage: UNK, Daily
     Route: 048
  4. PEPCID [Concomitant]
     Dosage: Unk, daily
     Route: 048

REACTIONS (9)
  - Deep vein thrombosis [None]
  - Deep vein thrombosis [None]
  - Pulmonary embolism [None]
  - Injury [None]
  - Pain [None]
  - General physical health deterioration [None]
  - Anxiety [None]
  - Emotional distress [None]
  - Anhedonia [None]
